FAERS Safety Report 4603066-9 (Version None)
Quarter: 2005Q1

REPORT INFORMATION
  Report Type: 
  Country: None (occurrence: None)
  Receive Date: 20050307
  Receipt Date: 20050225
  Transmission Date: 20050727
  Serious: Yes (Other)
  Sender: FDA-Public Use
  Company Number: 2005-02-1667

PATIENT
  Sex: Female

DRUGS (3)
  1. AERIUS (DESLORATADINE) [Suspect]
     Indication: HYPERSENSITIVITY
     Dosage: 1 TAB ORAL
     Route: 048
     Dates: start: 20050222, end: 20050222
  2. COVERSYL TABLETS [Concomitant]
  3. DIURETIC (NOS) [Concomitant]

REACTIONS (1)
  - BLOOD PRESSURE INCREASED [None]
